FAERS Safety Report 5213001-0 (Version None)
Quarter: 2007Q1

REPORT INFORMATION
  Report Type: 
  Country: None (occurrence: None)
  Receive Date: 20070117
  Receipt Date: 20070105
  Transmission Date: 20070707
  Serious: Yes (Death)
  Sender: FDA-Public Use
  Company Number: CIP06002764

PATIENT
  Age: 44 Year
  Sex: Male
  Weight: 136.1 kg

DRUGS (9)
  1. DANTRIUM [Suspect]
     Indication: NEUROLEPTIC MALIGNANT SYNDROME
     Dosage: 116 MG EVERY 6HR, IV NOS ; 50 MG TWICE DAILY ORAL
     Route: 042
     Dates: start: 20060713, end: 20060714
  2. NORVASC [Suspect]
     Indication: HYPERTENSION
     Dosage: 5 MG DAILY ORAL
     Route: 048
  3. CLOZAPINE [Suspect]
     Indication: SCHIZOAFFECTIVE DISORDER
     Dosage: 400 TO 600 MG DAILY ORAL
     Route: 048
     Dates: start: 20060622, end: 20060709
  4. ATENOLOL [Concomitant]
  5. CLONAZEPAM [Concomitant]
  6. GLIPIZIDE [Concomitant]
  7. BROMOCRIPTINE MESYLATE [Concomitant]
  8. INSULIN [Concomitant]
  9. GLUCOPHAGE /00082701/ (METFORMIN) [Concomitant]

REACTIONS (21)
  - AGITATION [None]
  - ANOXIC ENCEPHALOPATHY [None]
  - APNOEA [None]
  - ASPIRATION [None]
  - BLOOD CREATINE PHOSPHOKINASE INCREASED [None]
  - BRAIN DAMAGE [None]
  - CARDIAC ARREST [None]
  - CARDIO-RESPIRATORY ARREST [None]
  - DRUG INTERACTION [None]
  - EJECTION FRACTION DECREASED [None]
  - ELECTROCARDIOGRAM ST-T CHANGE [None]
  - LETHARGY [None]
  - PARALYSIS [None]
  - PNEUMONIA [None]
  - PSYCHOTIC DISORDER [None]
  - RESPIRATORY ARREST [None]
  - RESPIRATORY DEPRESSION [None]
  - SEPSIS [None]
  - SKIN DISCOLOURATION [None]
  - TACHYCARDIA [None]
  - VENTRICULAR FIBRILLATION [None]
